FAERS Safety Report 12620914 (Version 1)
Quarter: 2016Q3

REPORT INFORMATION
  Report Type: Spontaneous
  Country: US (occurrence: None)
  Receive Date: 20160803
  Receipt Date: 20160803
  Transmission Date: 20161109
  Serious: Yes (Other)
  Sender: FDA-Public Use
  Company Number: None

PATIENT
  Age: 59 Year
  Sex: Male
  Weight: 79.38 kg

DRUGS (3)
  1. DIFLUCAN [Suspect]
     Active Substance: FLUCONAZOLE
     Indication: ONYCHOMYCOSIS
     Route: 048
     Dates: start: 20150810, end: 20151130
  2. MELOXICAM. [Concomitant]
     Active Substance: MELOXICAM
  3. MULTIVITAMIN [Concomitant]
     Active Substance: VITAMINS

REACTIONS (12)
  - Chills [None]
  - Viral infection [None]
  - Sciatica [None]
  - Paraesthesia [None]
  - Pain [None]
  - Influenza like illness [None]
  - Nausea [None]
  - Myalgia [None]
  - Hypoaesthesia [None]
  - Muscle atrophy [None]
  - Nail discolouration [None]
  - Muscular weakness [None]

NARRATIVE: CASE EVENT DATE: 20151231
